FAERS Safety Report 5096250-4 (Version None)
Quarter: 2006Q3

REPORT INFORMATION
  Report Type: 
  Country: None (occurrence: None)
  Receive Date: 20060905
  Receipt Date: 20060628
  Transmission Date: 20061208
  Serious: Yes (Life-Threatening, Other)
  Sender: FDA-Public Use
  Company Number: JP-MERCK-0607USA00111

PATIENT
  Age: 72 Year
  Sex: Female
  Weight: 44 kg

DRUGS (18)
  1. STROMECTOL [Suspect]
     Indication: ACARODERMATITIS
     Route: 048
     Dates: start: 20060517, end: 20060517
  2. VIT D TAB [Suspect]
     Route: 041
     Dates: end: 20060612
  3. LIMAS [Concomitant]
     Indication: DEPRESSION
     Route: 048
     Dates: end: 20060611
  4. FLUVOXAMINE MALEATE [Concomitant]
     Indication: DEPRESSION
     Route: 048
     Dates: end: 20060611
  5. PARLODEL [Concomitant]
     Indication: DEPRESSION
     Route: 048
     Dates: end: 20060611
  6. SYMMETREL [Suspect]
     Indication: MENTAL IMPAIRMENT
     Route: 048
     Dates: start: 20051109, end: 20060611
  7. SYMMETREL [Suspect]
     Route: 048
     Dates: start: 20060704, end: 20060713
  8. GASCON [Concomitant]
     Indication: ILEUS PARALYTIC
     Route: 048
     Dates: end: 20060611
  9. BUFFERIN [Concomitant]
     Indication: CEREBRAL INFARCTION
     Route: 048
     Dates: end: 20060611
  10. LENDORMIN [Concomitant]
     Indication: INSOMNIA
     Route: 048
     Dates: end: 20060611
  11. PURSENNID [Concomitant]
     Indication: CONSTIPATION
     Route: 048
     Dates: end: 20060611
  12. RISPERDAL [Concomitant]
     Indication: DEPRESSION
     Route: 048
     Dates: end: 20060611
  13. SINEMET [Concomitant]
     Indication: PARKINSON'S DISEASE
     Route: 048
     Dates: end: 20060611
  14. SINEMET [Concomitant]
     Route: 048
     Dates: end: 20060611
  15. SINEMET [Concomitant]
     Route: 048
     Dates: end: 20060611
  16. AMOBAN [Concomitant]
     Indication: INSOMNIA
     Route: 048
     Dates: end: 20060611
  17. TAKEPRON [Concomitant]
     Indication: GASTRIC ULCER
     Route: 048
     Dates: end: 20060611
  18. MAGNESIUM OXIDE [Concomitant]
     Indication: CONSTIPATION
     Route: 048
     Dates: end: 20060611

REACTIONS (12)
  - ANAEMIA [None]
  - DELIRIUM TREMENS [None]
  - DEPRESSED LEVEL OF CONSCIOUSNESS [None]
  - ENCEPHALITIS [None]
  - ENCEPHALOPATHY [None]
  - HALLUCINATION [None]
  - HALLUCINATION, VISUAL [None]
  - HYPERCALCAEMIA [None]
  - OEDEMA PERIPHERAL [None]
  - PNEUMONIA [None]
  - RENAL FAILURE ACUTE [None]
  - VOMITING [None]
